FAERS Safety Report 14088881 (Version 1)
Quarter: 2017Q4

REPORT INFORMATION
  Report Type: Report from Study
  Country: IT (occurrence: IT)
  Receive Date: 20171014
  Receipt Date: 20171014
  Transmission Date: 20180321
  Serious: Yes (Other)
  Sender: FDA-Public Use
  Company Number: IT-ROCHE-2007887

PATIENT

DRUGS (2)
  1. TRASTUZUMAB. [Suspect]
     Active Substance: TRASTUZUMAB
     Dosage: AFTER THE FIRST CYCLE FOR 12 MONTHS
     Route: 042
  2. TRASTUZUMAB. [Suspect]
     Active Substance: TRASTUZUMAB
     Indication: HER-2 POSITIVE BREAST CANCER
     Dosage: FIRST CYCLE
     Route: 042

REACTIONS (4)
  - Fibrosis [Unknown]
  - Skin toxicity [Unknown]
  - Left ventricular dysfunction [Unknown]
  - Oedema [Unknown]
